FAERS Safety Report 6754008-1 (Version None)
Quarter: 2010Q2

REPORT INFORMATION
  Report Type: 
  Country: None (occurrence: None)
  Receive Date: 20100603
  Receipt Date: 20100526
  Transmission Date: 20101027
  Serious: Yes (Other)
  Sender: FDA-Public Use
  Company Number: B0657273A

PATIENT
  Sex: Male

DRUGS (7)
  1. ZELITREX [Suspect]
     Indication: DRUG USE FOR UNKNOWN INDICATION
     Route: 048
     Dates: start: 19980101
  2. REYATAZ [Suspect]
     Indication: HIV INFECTION
     Dosage: 150MG TWICE PER DAY
     Route: 048
     Dates: start: 20060201
  3. NORVIR [Suspect]
     Indication: HIV INFECTION
     Dosage: 100MG PER DAY
     Route: 048
     Dates: start: 20060201
  4. TRUVADA [Suspect]
     Indication: HIV INFECTION
     Route: 048
     Dates: start: 20071210
  5. VIDEX [Suspect]
     Indication: HIV INFECTION
     Route: 048
     Dates: start: 20060201, end: 20071210
  6. VIREAD [Suspect]
     Indication: HIV INFECTION
     Dosage: 245MG UNKNOWN
     Route: 048
     Dates: start: 20060201, end: 20071210
  7. FORADIL [Concomitant]
     Dosage: 12MCG UNKNOWN
     Route: 048
     Dates: start: 19980101

REACTIONS (3)
  - BACK PAIN [None]
  - NEUROPATHY PERIPHERAL [None]
  - SCIATICA [None]
